FAERS Safety Report 7916814-7 (Version None)
Quarter: 2011Q4

REPORT INFORMATION
  Report Type: 
  Country: None (occurrence: None)
  Receive Date: 20111116
  Receipt Date: 20111107
  Transmission Date: 20120403
  Serious: Yes (Hospitalization)
  Sender: FDA-Public Use
  Company Number: RU-ASTRAZENECA-2011SE56105

PATIENT
  Age: 25101 Day
  Sex: Male

DRUGS (7)
  1. CRESTOR [Concomitant]
     Indication: HYPERCHOLESTEROLAEMIA
     Route: 048
  2. TARKA [Concomitant]
     Indication: HYPERTENSION
     Route: 048
  3. PLAVIX [Suspect]
     Indication: CORONARY ARTERY DISEASE
     Route: 048
     Dates: start: 20110831, end: 20110913
  4. CARVEDILIL [Concomitant]
     Indication: ANGINA PECTORIS
     Route: 048
  5. CRESTOR [Concomitant]
     Indication: CORONARY ARTERY DISEASE
     Route: 048
  6. CARVEDILIL [Concomitant]
     Indication: HYPERTENSION
     Route: 048
  7. ASPIRIN [Concomitant]
     Route: 048

REACTIONS (1)
  - RENAL COLIC [None]
